FAERS Safety Report 19853265 (Version 1)
Quarter: 2021Q3

REPORT INFORMATION
  Report Type: Spontaneous
  Country: US (occurrence: US)
  Receive Date: 20210919
  Receipt Date: 20210919
  Transmission Date: 20211014
  Serious: No
  Sender: FDA-Public Use
  Company Number: US-SA-2021SA305051

PATIENT
  Age: 48 Year
  Sex: Female

DRUGS (25)
  1. AUBAGIO [Suspect]
     Active Substance: TERIFLUNOMIDE
     Indication: GASTROOESOPHAGEAL REFLUX DISEASE
     Dosage: 14 MG, QD
     Route: 048
     Dates: start: 20191127
  2. NEUPRO [Concomitant]
     Active Substance: ROTIGOTINE
  3. BIOTIN [Concomitant]
     Active Substance: BIOTIN
  4. POTASSIUM CITRATE. [Concomitant]
     Active Substance: POTASSIUM CITRATE
  5. SOLU?MEDROL [Concomitant]
     Active Substance: METHYLPREDNISOLONE SODIUM SUCCINATE
  6. LINZESS [Concomitant]
     Active Substance: LINACLOTIDE
  7. METFORMIN HCL [Concomitant]
     Active Substance: METFORMIN HYDROCHLORIDE
  8. CALCIUM [Concomitant]
     Active Substance: CALCIUM
  9. DOXYCYCLINE. [Concomitant]
     Active Substance: DOXYCYCLINE
  10. GABAPENTIN. [Concomitant]
     Active Substance: GABAPENTIN
  11. MINIVELLE [Concomitant]
     Active Substance: ESTRADIOL
  12. PREDNISONE. [Concomitant]
     Active Substance: PREDNISONE
  13. CITALOPRAM HYDROBROMIDE. [Concomitant]
     Active Substance: CITALOPRAM HYDROBROMIDE
  14. ADDERALL [Concomitant]
     Active Substance: AMPHETAMINE ASPARTATE\AMPHETAMINE SULFATE\DEXTROAMPHETAMINE SACCHARATE\DEXTROAMPHETAMINE SULFATE
  15. SPIRONOLACTON [Concomitant]
     Active Substance: SPIRONOLACTONE
  16. LUNESTA [Concomitant]
     Active Substance: ESZOPICLONE
  17. ACYCLOVIR [ACICLOVIR] [Concomitant]
     Active Substance: ACYCLOVIR
     Dosage: 14 MG
  18. MODAFINIL. [Concomitant]
     Active Substance: MODAFINIL
  19. ALPRAZOLAM. [Concomitant]
     Active Substance: ALPRAZOLAM
  20. DICYCLOMINE HCL [Concomitant]
     Active Substance: DICYCLOMINE HYDROCHLORIDE
  21. EMGALITY [Concomitant]
     Active Substance: GALCANEZUMAB-GNLM
  22. AUBAGIO [Suspect]
     Active Substance: TERIFLUNOMIDE
     Indication: OESOPHAGITIS
  23. ONDANSETRON HCL [Concomitant]
     Active Substance: ONDANSETRON HYDROCHLORIDE
  24. PANTOPRAZOLE [Concomitant]
     Active Substance: PANTOPRAZOLE
  25. VITAMIN D3 [Concomitant]
     Active Substance: CHOLECALCIFEROL

REACTIONS (2)
  - Product use in unapproved indication [Unknown]
  - Pruritus [Recovered/Resolved]

NARRATIVE: CASE EVENT DATE: 20191127
